FAERS Safety Report 6955583-4 (Version None)
Quarter: 2010Q3

REPORT INFORMATION
  Report Type: 
  Country: None (occurrence: None)
  Receive Date: 20100830
  Receipt Date: 20100823
  Transmission Date: 20110219
  Serious: Yes (Life-Threatening, Hospitalization)
  Sender: FDA-Public Use
  Company Number: JP-ROCHE-703040

PATIENT
  Sex: Female

DRUGS (6)
  1. TOCILIZUMAB [Suspect]
     Indication: RHEUMATOID ARTHRITIS
     Route: 041
     Dates: start: 20090606, end: 20090606
  2. TOCILIZUMAB [Suspect]
     Route: 041
     Dates: start: 20090701, end: 20090701
  3. TOCILIZUMAB [Suspect]
     Dosage: DISCONTINUED.
     Route: 041
     Dates: start: 20090803, end: 20090803
  4. RHEUMATREX [Concomitant]
     Route: 048
  5. PREDNISOLONE [Concomitant]
     Dosage: FORM: PERORAL AGENT.
     Route: 048
  6. PEON [Concomitant]
     Route: 048

REACTIONS (4)
  - HYPERPARATHYROIDISM [None]
  - PYELONEPHRITIS ACUTE [None]
  - SEPSIS [None]
  - URINARY TRACT INFECTION [None]
